FAERS Safety Report 8072041-7 (Version None)
Quarter: 2012Q1

REPORT INFORMATION
  Report Type: 
  Country: None (occurrence: None)
  Receive Date: 20120124
  Receipt Date: 20120124
  Transmission Date: 20120608
  Serious: No
  Sender: FDA-Public Use
  Company Number: None

PATIENT
  Age: 24 Year
  Sex: Female
  Weight: 79.7 kg

DRUGS (1)
  1. ZIPRASIDONE HYDROCHLORIDE [Suspect]
     Dosage: 40 MG BID PO
     Route: 048
     Dates: start: 20110823, end: 20110907

REACTIONS (5)
  - THROAT IRRITATION [None]
  - GLOSSODYNIA [None]
  - SKIN EXFOLIATION [None]
  - RASH PAPULAR [None]
  - RASH PRURITIC [None]
